FAERS Safety Report 8826190 (Version 1)
Quarter: 2012Q4

REPORT INFORMATION
  Report Type: 
  Country: FR (occurrence: FR)
  Receive Date: 20121008
  Receipt Date: 20121008
  Transmission Date: 20130627
  Serious: Yes (Other)
  Sender: FDA-Public Use
  Company Number: FR-ELI_LILLY_AND_COMPANY-FR201010001912

PATIENT
  Age: 35 Year
  Sex: Female

DRUGS (2)
  1. ZYPREXA [Suspect]
     Indication: PSYCHOTIC DISORDER
     Dosage: 10 mg, qd
     Route: 048
     Dates: start: 20091203, end: 20101026
  2. TARDYFERON [Concomitant]
     Route: 048

REACTIONS (3)
  - Placenta praevia [Recovered/Resolved]
  - Urinary tract infection [Unknown]
  - Exposure during pregnancy [Recovered/Resolved]
